FAERS Safety Report 4616867-8 (Version None)
Quarter: 2005Q1

REPORT INFORMATION
  Report Type: 
  Country: None (occurrence: None)
  Receive Date: 20050321
  Receipt Date: 20050315
  Transmission Date: 20050727
  Serious: Yes (Death)
  Sender: FDA-Public Use
  Company Number: 2005037501

PATIENT
  Age: 68 Year
  Sex: Female

DRUGS (2)
  1. ZYVOX [Suspect]
     Indication: STAPHYLOCOCCAL INFECTION
     Dosage: 1200 MG (600 MG BID) INTRAVENOUS
     Route: 042
     Dates: start: 20040309, end: 20040317
  2. MICAFUNGIN [Concomitant]

REACTIONS (4)
  - CONDITION AGGRAVATED [None]
  - MULTIPLE-DRUG RESISTANCE [None]
  - PSEUDOMONAS INFECTION [None]
  - RESPIRATORY TRACT INFECTION [None]
